FAERS Safety Report 8244716-8 (Version None)
Quarter: 2012Q1

REPORT INFORMATION
  Report Type: 
  Country: None (occurrence: None)
  Receive Date: 20120329
  Receipt Date: 20110210
  Transmission Date: 20120608
  Serious: No
  Sender: FDA-Public Use
  Company Number: US-MYLANLABS-2011S1003081

PATIENT
  Age: 80 Year
  Sex: Female
  Weight: 77.11 kg

DRUGS (11)
  1. FENTANYL-100 [Suspect]
     Indication: ARTHRALGIA
     Dosage: CHANGED Q. 72 HOURS.
     Route: 062
     Dates: start: 20110209
  2. SIMVASTATIN [Concomitant]
     Indication: BLOOD CHOLESTEROL INCREASED
  3. LEVOTHROID [Concomitant]
     Indication: HYPOTHYROIDISM
  4. LOSARTAN POTASSIUM [Concomitant]
     Indication: BLOOD PRESSURE INCREASED
  5. SULINDAC [Concomitant]
     Indication: ARTHRITIS
  6. HYDROCODONE BITARTRATE [Concomitant]
     Indication: ARTHRITIS
     Dosage: 10MG/325MG X 2, TID
     Dates: start: 20100101
  7. AMLODIPINE [Concomitant]
     Indication: BLOOD PRESSURE INCREASED
  8. POTASSIUM [Concomitant]
  9. LASIX [Concomitant]
     Indication: FLUID RETENTION
  10. MIRAPEX [Concomitant]
     Indication: RESTLESS LEGS SYNDROME
     Dates: start: 20050101
  11. IRON [Concomitant]
     Indication: ANAEMIA

REACTIONS (2)
  - HYPOAESTHESIA [None]
  - PARAESTHESIA [None]
